FAERS Safety Report 12383933 (Version 1)
Quarter: 2016Q2

REPORT INFORMATION
  Report Type: Spontaneous
  Country: US (occurrence: US)
  Receive Date: 20160519
  Receipt Date: 20160519
  Transmission Date: 20160815
  Serious: Yes (Other)
  Sender: FDA-Public Use
  Company Number: US-STRIDES ARCOLAB LIMITED-2016SP001595

PATIENT

DRUGS (12)
  1. HEPARIN [Suspect]
     Active Substance: HEPARIN SODIUM
     Indication: THROMBOSIS PROPHYLAXIS
     Dosage: UNK
  2. BETAMETHASONE. [Suspect]
     Active Substance: BETAMETHASONE
     Indication: RESPIRATORY DISTRESS
     Dosage: UNK
  3. AZITHROMYCIN ANHYDROUS. [Suspect]
     Active Substance: AZITHROMYCIN ANHYDROUS
     Indication: RESPIRATORY DISTRESS
     Dosage: UNK
  4. VASOPRESSIN. [Suspect]
     Active Substance: VASOPRESSIN
     Indication: HYPOTENSION
     Dosage: UNK
  5. CEFTRIAXONE. [Suspect]
     Active Substance: CEFTRIAXONE
     Indication: RESPIRATORY DISTRESS
     Dosage: UNK
  6. FUROSEMIDE. [Suspect]
     Active Substance: FUROSEMIDE
     Indication: RESPIRATORY DISTRESS
     Dosage: UNK
  7. MEROPENEM. [Suspect]
     Active Substance: MEROPENEM
     Indication: RESPIRATORY DISTRESS
     Dosage: UNK
  8. NOREPINEPHRINE [Suspect]
     Active Substance: NOREPINEPHRINE\NOREPINEPHRINE BITARTRATE
     Indication: HYPOTENSION
     Dosage: UNK
  9. OSELTAMIVIR [Suspect]
     Active Substance: OSELTAMIVIR
     Indication: RESPIRATORY DISTRESS
     Dosage: UNK
  10. LINEZOLID. [Suspect]
     Active Substance: LINEZOLID
     Indication: RESPIRATORY DISTRESS
     Dosage: UNK
  11. VANCOMYCIN [Suspect]
     Active Substance: VANCOMYCIN
     Indication: RESPIRATORY DISTRESS
     Dosage: UNK
     Route: 042
  12. PHENYLEPHRINE [Suspect]
     Active Substance: PHENYLEPHRINE\PHENYLEPHRINE HYDROCHLORIDE
     Indication: RESPIRATORY DISTRESS
     Dosage: UNK

REACTIONS (1)
  - Exposure during pregnancy [Unknown]
